FAERS Safety Report 10997823 (Version 1)
Quarter: 2015Q2

REPORT INFORMATION
  Report Type: Spontaneous
  Country: US (occurrence: US)
  Receive Date: 20150408
  Receipt Date: 20150408
  Transmission Date: 20150821
  Serious: No
  Sender: FDA-Public Use
  Company Number: US-BANPHARM-20143129

PATIENT
  Age: 85 Year
  Sex: Female
  Weight: 62.6 kg

DRUGS (7)
  1. ALEVE [Suspect]
     Active Substance: NAPROXEN SODIUM
     Indication: ARTHRITIS
     Dosage: 3 CAPSULES, QD,
     Route: 048
     Dates: start: 201409, end: 20141002
  2. BETOPTIC [Interacting]
     Active Substance: BETAXOLOL HYDROCHLORIDE
  3. VITAMIN D [Concomitant]
     Active Substance: CHOLECALCIFEROL
  4. ZOLPIDEM [Concomitant]
     Active Substance: ZOLPIDEM\ZOLPIDEM TARTRATE
  5. TRAMADOL [Concomitant]
     Active Substance: TRAMADOL
  6. BAYER LOW DOSE [Concomitant]
     Active Substance: ASPIRIN
     Dosage: 1 DF, QD,
  7. AMOLDIPINE [Concomitant]

REACTIONS (2)
  - Incorrect drug administration duration [Unknown]
  - Tinnitus [Not Recovered/Not Resolved]

NARRATIVE: CASE EVENT DATE: 201409
